FAERS Safety Report 14364434 (Version 1)
Quarter: 2018Q1

REPORT INFORMATION
  Report Type: Report from Study
  Country: AU (occurrence: AU)
  Receive Date: 20180108
  Receipt Date: 20180108
  Transmission Date: 20180509
  Serious: Yes (Hospitalization)
  Sender: FDA-Public Use
  Company Number: AU-PFIZER INC-2003035524

PATIENT
  Age: 41 Year
  Sex: Male
  Weight: 92.4 kg

DRUGS (17)
  1. SENNA FRUIT [Concomitant]
     Route: 048
     Dates: start: 1994
  2. DANTROLENE. [Concomitant]
     Active Substance: DANTROLENE SODIUM
     Route: 048
     Dates: start: 19940404
  3. VACCINIUM MACROCARPON [Concomitant]
     Active Substance: CRANBERRY
     Route: 048
  4. BISACODYL. [Concomitant]
     Active Substance: BISACODYL
     Dates: start: 1994
  5. NORFLOXACIN [Concomitant]
     Active Substance: NORFLOXACIN
     Dates: start: 20030718, end: 20030725
  6. GABAPENTIN. [Concomitant]
     Active Substance: GABAPENTIN
     Route: 048
     Dates: start: 20030805
  7. BETAMETHASONE VALERATE. [Concomitant]
     Active Substance: BETAMETHASONE VALERATE
  8. PRAZOSIN. [Concomitant]
     Active Substance: PRAZOSIN
  9. DIAZEPAM. [Concomitant]
     Active Substance: DIAZEPAM
     Route: 048
  10. COLOXYL WITH SENNA [Concomitant]
     Active Substance: DOCUSATE\SENNOSIDES
     Route: 048
     Dates: start: 1994
  11. PREGABALIN. [Suspect]
     Active Substance: PREGABALIN
     Indication: SPINAL CORD INJURY
     Dosage: 150-600 MG PER DAY
     Route: 048
     Dates: start: 20030709, end: 20030805
  12. OXYBUTYNIN. [Concomitant]
     Active Substance: OXYBUTYNIN CHLORIDE
     Route: 048
     Dates: start: 1998
  13. BACLOFEN. [Concomitant]
     Active Substance: BACLOFEN
     Route: 048
     Dates: start: 1993
  14. ASCORBIC ACID. [Concomitant]
     Active Substance: ASCORBIC ACID
     Route: 048
     Dates: start: 1993
  15. CEPHALEXIN MONOHYDRATE. [Concomitant]
     Active Substance: CEPHALEXIN MONOHYDRATE
     Dates: start: 20030728
  16. ZINC SULFATE [Concomitant]
     Active Substance: ZINC SULFATE\ZINC SULFATE ANHYDROUS
     Route: 048
     Dates: start: 2000
  17. CARBAMAZEPINE. [Concomitant]
     Active Substance: CARBAMAZEPINE
     Route: 048
     Dates: start: 1994, end: 20030825

REACTIONS (3)
  - Haemodilution [Recovered/Resolved]
  - Oedema [Recovered/Resolved]
  - Platelet count decreased [Recovered/Resolved]

NARRATIVE: CASE EVENT DATE: 20030805
